FAERS Safety Report 25726805 (Version 1)
Quarter: 2025Q3

REPORT INFORMATION
  Report Type: Spontaneous
  Country: US (occurrence: None)
  Receive Date: 20250825
  Receipt Date: 20250825
  Transmission Date: 20251020
  Serious: Yes (Hospitalization)
  Sender: FDA-CTU
  Company Number: None

PATIENT
  Age: 52 Year

DRUGS (1)
  1. WARFARIN [Suspect]
     Active Substance: WARFARIN

REACTIONS (8)
  - Haemoptysis [None]
  - Epistaxis [None]
  - Haematochezia [None]
  - Thrombosis [None]
  - Cerebrovascular accident [None]
  - Haemoglobin decreased [None]
  - Haematocrit decreased [None]
  - Therapy interrupted [None]

NARRATIVE: CASE EVENT DATE: 20220530
